FAERS Safety Report 5781597-6 (Version None)
Quarter: 2008Q2

REPORT INFORMATION
  Report Type: 
  Country: None (occurrence: None)
  Receive Date: 20080623
  Receipt Date: 20070619
  Transmission Date: 20081010
  Serious: No
  Sender: FDA-Public Use
  Company Number: US-ASTRAZENECA-2007UW14588

PATIENT
  Age: 42 Year
  Sex: Male

DRUGS (1)
  1. RHINOCORT [Suspect]
     Dosage: 120 METERED DOSE UNIT
     Route: 045

REACTIONS (2)
  - DEVICE BREAKAGE [None]
  - SKIN LACERATION [None]
